FAERS Safety Report 25648166 (Version 1)
Quarter: 2025Q3

REPORT INFORMATION
  Report Type: Spontaneous
  Country: CN (occurrence: CN)
  Receive Date: 20250806
  Receipt Date: 20250806
  Transmission Date: 20251021
  Serious: Yes (Other)
  Sender: BAXTER
  Company Number: None

PATIENT
  Age: 74 Year
  Sex: Female
  Weight: 60 kg

DRUGS (6)
  1. CYCLOPHOSPHAMIDE [Suspect]
     Active Substance: CYCLOPHOSPHAMIDE
     Indication: Lymphoma
     Dosage: 1000 MG, QD, D1
     Route: 041
     Dates: start: 20250706, end: 20250706
  2. SODIUM CHLORIDE [Suspect]
     Active Substance: SODIUM CHLORIDE
     Dosage: 100 ML, QD, 0.9% INJECTION, D1 (WITH CYCLOPHOSPHAMIDE)
     Route: 041
     Dates: start: 20250706, end: 20250706
  3. SODIUM CHLORIDE [Suspect]
     Active Substance: SODIUM CHLORIDE
     Dosage: 20 ML, QD, 0.9% INJECTION, D1 (WITH VINCRISTINE)
     Route: 041
     Dates: start: 20250706, end: 20250706
  4. DEXTROSE [Suspect]
     Active Substance: DEXTROSE MONOHYDRATE
     Dosage: 100 ML, QD, 5% INJECTION, D1 (WITH PIRARUBICIN)
     Route: 041
     Dates: start: 20250706, end: 20250706
  5. PIRARUBICIN HYDROCHLORIDE [Suspect]
     Active Substance: PIRARUBICIN HYDROCHLORIDE
     Indication: Lymphoma
     Dosage: 70 MG, QD, D1
     Route: 041
     Dates: start: 20250706, end: 20250706
  6. VINCRISTINE SULFATE [Suspect]
     Active Substance: VINCRISTINE SULFATE
     Indication: Lymphoma
     Dosage: 1 MG, QD, D1
     Route: 041
     Dates: start: 20250706, end: 20250706

REACTIONS (2)
  - Myelosuppression [Recovering/Resolving]
  - Asthenia [Unknown]

NARRATIVE: CASE EVENT DATE: 20250717
